FAERS Safety Report 8250930-8 (Version None)
Quarter: 2012Q2

REPORT INFORMATION
  Report Type: 
  Country: None (occurrence: None)
  Receive Date: 20120402
  Receipt Date: 20120326
  Transmission Date: 20120825
  Serious: Yes (Other)
  Sender: FDA-Public Use
  Company Number: US-BAYER-2012-029677

PATIENT
  Age: 63 Year
  Sex: Female
  Weight: 170 kg

DRUGS (3)
  1. ALEVE (CAPLET) [Suspect]
     Indication: ARTHRITIS
     Dosage: 440 MG, BID OR TID
     Route: 048
     Dates: start: 20060101, end: 20060101
  2. VICODIN [Concomitant]
  3. DIOVAN [Concomitant]

REACTIONS (2)
  - HAEMORRHAGIC ANAEMIA [None]
  - OESOPHAGEAL ULCER HAEMORRHAGE [None]
